FAERS Safety Report 17566174 (Version 2)
Quarter: 2020Q2

REPORT INFORMATION
  Report Type: Report from Study
  Country: US (occurrence: US)
  Receive Date: 20200320
  Receipt Date: 20200609
  Transmission Date: 20200713
  Serious: Yes (Hospitalization)
  Sender: FDA-Public Use
  Company Number: US-BAYER-2020-045975

PATIENT
  Age: 74 Year
  Sex: Male
  Weight: 81.2 kg

DRUGS (8)
  1. VITAMINS NOS [Concomitant]
     Active Substance: VITAMINS
  2. REGORAFENIB. [Suspect]
     Active Substance: REGORAFENIB
     Indication: HAEMATOLOGICAL MALIGNANCY
     Dosage: 160 MG, QD
     Route: 048
     Dates: start: 20200225, end: 20200310
  3. DYAZIDE [Concomitant]
     Active Substance: HYDROCHLOROTHIAZIDE\TRIAMTERENE
  4. MORPHINE [Concomitant]
     Active Substance: MORPHINE
  5. BACLOFEN. [Concomitant]
     Active Substance: BACLOFEN
  6. ONDANSETRON [Concomitant]
     Active Substance: ONDANSETRON
  7. REGORAFENIB. [Suspect]
     Active Substance: REGORAFENIB
     Indication: HAEMATOLOGICAL MALIGNANCY
     Dosage: UNK
     Dates: start: 20200326
  8. SYNTHROID [Concomitant]
     Active Substance: LEVOTHYROXINE SODIUM

REACTIONS (5)
  - Dyspnoea [None]
  - Rash [None]
  - Atrial flutter [None]
  - Asthenia [None]
  - Supraventricular tachycardia [Recovered/Resolved]

NARRATIVE: CASE EVENT DATE: 20200311
